FAERS Safety Report 8197805-0 (Version None)
Quarter: 2012Q1

REPORT INFORMATION
  Report Type: 
  Country: None (occurrence: None)
  Receive Date: 20120309
  Receipt Date: 20120306
  Transmission Date: 20120608
  Serious: Yes (Other)
  Sender: FDA-Public Use
  Company Number: US-BAYER-2011-025002

PATIENT
  Age: 27 Year
  Sex: Female
  Weight: 104.31 kg

DRUGS (7)
  1. PRILOSEC [Concomitant]
  2. PERCOCET [Concomitant]
     Dosage: UNK
     Dates: start: 20090316
  3. MULTI-VITAMIN [Concomitant]
  4. YAZ [Suspect]
     Indication: PREMENSTRUAL SYNDROME
     Dosage: UNK
     Dates: start: 20090101
  5. VITAMIN D [Concomitant]
  6. TRAMADOL HCL [Concomitant]
     Dosage: 50 MG, UNK
  7. CALCIUM [Concomitant]

REACTIONS (7)
  - INJURY [None]
  - SCAR [None]
  - PAIN [None]
  - GALLBLADDER INJURY [None]
  - CHOLECYSTITIS [None]
  - EMOTIONAL DISTRESS [None]
  - ANXIETY [None]
